FAERS Safety Report 8823282 (Version 20)
Quarter: 2016Q3

REPORT INFORMATION
  Report Type: Report from Study
  Country: CA (occurrence: CA)
  Receive Date: 20121003
  Receipt Date: 20160927
  Transmission Date: 20161109
  Serious: Yes (Other)
  Sender: FDA-Public Use
  Company Number: CA-ROCHE-1138095

PATIENT
  Age: 64 Year
  Sex: Female
  Weight: 78.2 kg

DRUGS (12)
  1. RITUXAN [Suspect]
     Active Substance: RITUXIMAB
     Dosage: DAY 1 AND 15;  LAST DOSE OF RITUXIMAB ON 18/NOV /2013
     Route: 042
     Dates: start: 20120905
  2. ARAVA [Concomitant]
     Active Substance: LEFLUNOMIDE
  3. METHYLPREDNISOLONE. [Concomitant]
     Active Substance: METHYLPREDNISOLONE
     Indication: PREMEDICATION
     Route: 042
     Dates: start: 20120905
  4. OMEPRAZOLE. [Concomitant]
     Active Substance: OMEPRAZOLE
  5. MIRTAZAPINE. [Concomitant]
     Active Substance: MIRTAZAPINE
  6. DIPHENHYDRAMINE HCL [Concomitant]
     Active Substance: DIPHENHYDRAMINE HYDROCHLORIDE
     Indication: PREMEDICATION
     Route: 048
     Dates: start: 20120905
  7. ACETAMINOPHEN. [Concomitant]
     Active Substance: ACETAMINOPHEN
     Indication: PREMEDICATION
     Route: 048
     Dates: start: 20120905
  8. TRAMCET [Suspect]
     Active Substance: ACETAMINOPHEN\TRAMADOL
     Indication: PRODUCT USED FOR UNKNOWN INDICATION
     Route: 065
  9. LOSEC [Concomitant]
     Active Substance: OMEPRAZOLE
  10. ATACAND [Concomitant]
     Active Substance: CANDESARTAN CILEXETIL
  11. OMEGA 3 [Concomitant]
     Active Substance: OMEGA-3 FATTY ACIDS
  12. RITUXAN [Suspect]
     Active Substance: RITUXIMAB
     Indication: RHEUMATOID ARTHRITIS
     Dosage: MOST RECENT DOSE OF RITUXIMAB ; 13/MAY/2014?RITUXIMAB INFUSION WAS RECEIVED ON 03/JUN/2014?MOST RECE
     Route: 042
     Dates: start: 201201

REACTIONS (25)
  - Respiratory disorder [Unknown]
  - Haemoglobin decreased [Unknown]
  - Hormone level abnormal [Unknown]
  - Balance disorder [Unknown]
  - Abdominal pain [Not Recovered/Not Resolved]
  - Pyrexia [Unknown]
  - Productive cough [Not Recovered/Not Resolved]
  - Alopecia [Not Recovered/Not Resolved]
  - Tooth disorder [Unknown]
  - Cough [Recovering/Resolving]
  - Dyspnoea [Recovered/Resolved]
  - Weight increased [Unknown]
  - Arthropathy [Unknown]
  - Hypertension [Unknown]
  - Transient ischaemic attack [Unknown]
  - Localised infection [Recovered/Resolved]
  - Pain [Recovered/Resolved]
  - Bronchitis [Recovering/Resolving]
  - Blood pressure fluctuation [Unknown]
  - Rales [Unknown]
  - Arthralgia [Unknown]
  - Wound infection [Not Recovered/Not Resolved]
  - Nasopharyngitis [Not Recovered/Not Resolved]
  - Laryngitis [Recovered/Resolved]
  - Oxygen saturation decreased [Unknown]

NARRATIVE: CASE EVENT DATE: 20120921
